FAERS Safety Report 8561351-2 (Version None)
Quarter: 2012Q3

REPORT INFORMATION
  Report Type: 
  Country: None (occurrence: None)
  Receive Date: 20120802
  Receipt Date: 20120730
  Transmission Date: 20120928
  Serious: No
  Sender: FDA-Public Use
  Company Number: US-B.I. PHARMACEUTICALS,INC./RIDGEFIELD-2012-BP-17137BP

PATIENT
  Sex: Female

DRUGS (7)
  1. ALLOPURINOL [Concomitant]
     Indication: GOUT
  2. LOSARTAN POTASSIUM [Concomitant]
  3. HYDROCHLOROTHIAZIDE [Concomitant]
  4. TRADJENTA [Suspect]
     Indication: DIABETES MELLITUS
     Dosage: 5 MG
     Route: 048
     Dates: start: 20111101, end: 20120601
  5. CARVEDILOL [Concomitant]
     Indication: HYPERTENSION
     Dosage: 50 MG
     Route: 048
  6. METFORMIN HYDROCHLORIDE [Suspect]
     Indication: DIABETES MELLITUS
     Dosage: 2000 MG
     Route: 048
     Dates: start: 20110601
  7. PRAVASTATIN [Concomitant]
     Dosage: 40 MG
     Route: 048

REACTIONS (4)
  - DIARRHOEA [None]
  - DECREASED APPETITE [None]
  - DIZZINESS [None]
  - ERUCTATION [None]
